FAERS Safety Report 24172959 (Version 1)
Quarter: 2024Q3

REPORT INFORMATION
  Report Type: Spontaneous
  Country: IE (occurrence: IE)
  Receive Date: 20240805
  Receipt Date: 20240805
  Transmission Date: 20241017
  Serious: Yes (Hospitalization, Disabling)
  Sender: ACCORD
  Company Number: IE-Accord-438793

PATIENT
  Age: 63 Year
  Sex: Female

DRUGS (7)
  1. ZOLEDRONIC ACID [Suspect]
     Active Substance: ZOLEDRONIC ACID
     Indication: Product used for unknown indication
     Dosage: 4 MG EVERY 4 WEEKS FOR 6 MONTHS, FOLLOWED BY 4 MG EVERY 3 AND THEN 6 MONTHS FOR A TOTAL OF 10 YEARS
  2. ESCITALOPRAM [Concomitant]
     Active Substance: ESCITALOPRAM OXALATE
     Indication: Anxiety
  3. LOSARTAN [Concomitant]
     Active Substance: LOSARTAN
  4. LETROZOLE [Concomitant]
     Active Substance: LETROZOLE
     Indication: Hormone therapy
  5. ZOLEDRONIC ACID [Suspect]
     Active Substance: ZOLEDRONIC ACID
     Indication: Product used for unknown indication
     Dosage: 4 MG EVERY 4 WEEKS FOR 6 MONTHS, FOLLOWED BY 4 MG EVERY 3 AND THEN 6 MONTHS FOR A TOTAL OF 10 YEARS
  6. ZOLEDRONIC ACID [Suspect]
     Active Substance: ZOLEDRONIC ACID
     Indication: Product used for unknown indication
     Dosage: 4 MG EVERY 4 WEEKS FOR 6 MONTHS, FOLLOWED BY 4 MG EVERY 3 AND THEN 6 MONTHS FOR A TOTAL OF 10 YEARS
  7. ESCITALOPRAM [Concomitant]
     Active Substance: ESCITALOPRAM OXALATE
     Indication: Depression

REACTIONS (2)
  - Atypical fracture [Recovered/Resolved]
  - Haematoma [Unknown]
